FAERS Safety Report 7750745-0 (Version None)
Quarter: 2011Q3

REPORT INFORMATION
  Report Type: 
  Country: None (occurrence: None)
  Receive Date: 20110914
  Receipt Date: 20110909
  Transmission Date: 20111222
  Serious: Yes (Life-Threatening, Hospitalization)
  Sender: FDA-Public Use
  Company Number: FR-ROCHE-801811

PATIENT
  Sex: Male
  Weight: 81 kg

DRUGS (3)
  1. DACARBAZINE [Suspect]
     Route: 042
  2. VEMURAFENIB [Suspect]
     Dosage: DOSE REPORTED 4-0-4
     Route: 048
     Dates: start: 20110825, end: 20110909
  3. FOTEMUSTINE [Suspect]
     Route: 042
     Dates: start: 20110501, end: 20110701

REACTIONS (5)
  - CHILLS [None]
  - THROMBOCYTOPENIA [None]
  - PYREXIA [None]
  - CONVULSION [None]
  - SEPSIS [None]
